FAERS Safety Report 8258298-8 (Version None)
Quarter: 2012Q2

REPORT INFORMATION
  Report Type: 
  Country: None (occurrence: None)
  Receive Date: 20120403
  Receipt Date: 20120403
  Transmission Date: 20120825
  Serious: Yes (Other)
  Sender: FDA-Public Use
  Company Number: None

PATIENT
  Sex: Male
  Weight: 95.2554 kg

DRUGS (2)
  1. GABAPENTIN [Suspect]
     Indication: BACK PAIN
     Dates: start: 20120316
  2. GABAPENTIN [Suspect]
     Indication: DYSPEPSIA
     Dates: start: 20120316

REACTIONS (2)
  - OEDEMA PERIPHERAL [None]
  - DYSPNOEA [None]
